FAERS Safety Report 12716567 (Version 1)
Quarter: 2016Q3

REPORT INFORMATION
  Report Type: Spontaneous
  Country: US (occurrence: US)
  Receive Date: 20160906
  Receipt Date: 20160906
  Transmission Date: 20161109
  Serious: No
  Sender: FDA-Public Use
  Company Number: US-PFIZER INC-2015393874

PATIENT
  Age: 60 Year
  Sex: Male
  Weight: 87.75 kg

DRUGS (1)
  1. RAPAMUNE [Suspect]
     Active Substance: SIROLIMUS
     Indication: LIVER TRANSPLANT
     Dosage: 2 MG, DAILY
     Route: 048

REACTIONS (2)
  - Product use issue [Unknown]
  - Herpes zoster [Not Recovered/Not Resolved]
